FAERS Safety Report 4781216-1 (Version None)
Quarter: 2005Q3

REPORT INFORMATION
  Report Type: 
  Country: None (occurrence: None)
  Receive Date: 20050928
  Receipt Date: 20050915
  Transmission Date: 20060218
  Serious: Yes (Other)
  Sender: FDA-Public Use
  Company Number: 2005AC01500

PATIENT
  Sex: Male

DRUGS (4)
  1. CRESTOR [Suspect]
     Indication: HYPERCHOLESTEROLAEMIA
     Route: 048
  2. INSULIN INSULATARD NPH NORDISK [Concomitant]
     Dosage: 100IE/ML PATR 3.0ML
  3. INSULIN ACTRAPID [Concomitant]
     Dosage: 100IE/ML PATR 3ML
  4. NIFEDIPINE [Concomitant]
     Route: 048

REACTIONS (2)
  - MYOPATHY [None]
  - PERONEAL NERVE PALSY [None]
